FAERS Safety Report 4415795-0 (Version None)
Quarter: 2004Q2

REPORT INFORMATION
  Report Type: 
  Country: None (occurrence: None)
  Receive Date: 20040621
  Receipt Date: 20040304
  Transmission Date: 20050107
  Serious: Yes (Hospitalization)
  Sender: FDA-Public Use
  Company Number: A-US2004-05341

PATIENT
  Age: 66 Year
  Sex: Male

DRUGS (11)
  1. TRACLEER [Suspect]
     Indication: PULMONARY HYPERTENSION
     Dosage: 125 MG, BID
  2. TRACLEER [Suspect]
     Dosage: 62.5 MG, BID
  3. ZITHROMAX [Concomitant]
  4. COREG [Concomitant]
  5. DIGOXIN [Concomitant]
  6. ATIVAN [Concomitant]
  7. BACTROBAN (MUPIROCIN) [Concomitant]
  8. ROBITUSSIN (GUAIFENESIN) [Concomitant]
  9. ZOLOFT [Concomitant]
  10. VICODIN [Concomitant]
  11. PEPCID IV (FAMOTIDINE) [Concomitant]

REACTIONS (1)
  - HYPOTENSION [None]
